FAERS Safety Report 9603388 (Version 2)
Quarter: 2013Q4

REPORT INFORMATION
  Report Type: Spontaneous
  Country: ES (occurrence: ES)
  Receive Date: 20131007
  Receipt Date: 20131016
  Transmission Date: 20140711
  Serious: Yes (Hospitalization)
  Sender: FDA-Public Use
  Company Number: ES-TEVA-435168ISR

PATIENT
  Age: 50 Year
  Sex: Female

DRUGS (3)
  1. LAMOTRIGINE [Suspect]
     Indication: EPILEPSY
     Route: 065
  2. DIPYRONE [Concomitant]
     Route: 065
  3. IBUPROFEN [Concomitant]
     Route: 065

REACTIONS (5)
  - Toxic epidermal necrolysis [Recovering/Resolving]
  - Eye ulcer [Recovered/Resolved with Sequelae]
  - Eye penetration [Recovered/Resolved with Sequelae]
  - Trichiasis [Unknown]
  - Punctate keratitis [Unknown]
